FAERS Safety Report 4390846-0 (Version None)
Quarter: 2004Q3

REPORT INFORMATION
  Report Type: 
  Country: None (occurrence: None)
  Receive Date: 20040706
  Receipt Date: 20040706
  Transmission Date: 20050211
  Serious: Yes (Hospitalization)
  Sender: FDA-Public Use
  Company Number: None

PATIENT
  Age: 52 Year
  Sex: Male
  Weight: 65.7716 kg

DRUGS (6)
  1. ZOLOFT [Suspect]
     Indication: DEPRESSION
     Dosage: 200 MG DAY ORAL
     Route: 048
     Dates: start: 20030105, end: 20040421
  2. ALTACE [Suspect]
     Indication: BLOOD PRESSURE
     Dosage: 10 MG DAY ORAL
     Route: 048
     Dates: start: 20020710, end: 20040421
  3. ZOCOR [Concomitant]
  4. NIASPAN [Concomitant]
  5. ALTACE [Concomitant]
  6. ANDRODERM [Concomitant]

REACTIONS (1)
  - MAJOR DEPRESSION [None]
